FAERS Safety Report 4327148-4 (Version None)
Quarter: 2004Q1

REPORT INFORMATION
  Report Type: 
  Country: None (occurrence: None)
  Receive Date: 20040330
  Receipt Date: 20040115
  Transmission Date: 20041129
  Serious: Yes (Other)
  Sender: FDA-Public Use
  Company Number: FR-GLAXOSMITHKLINE-B0320004A

PATIENT
  Age: 33 Year
  Sex: Female

DRUGS (1)
  1. ZYBAN [Suspect]
     Indication: EX-SMOKER
     Dosage: 150MG UNKNOWN
     Route: 048
     Dates: start: 20031217, end: 20040107

REACTIONS (23)
  - ANXIETY [None]
  - APTYALISM [None]
  - ASTHENIA [None]
  - CYTOLYTIC HEPATITIS [None]
  - CYTOMEGALOVIRUS ANTIBODY POSITIVE [None]
  - DERMATITIS EXFOLIATIVE [None]
  - EPSTEIN-BARR VIRUS ANTIBODY POSITIVE [None]
  - HYPERSENSITIVITY [None]
  - HYPOTENSION [None]
  - INFLAMMATION [None]
  - INSOMNIA [None]
  - LEUKOPENIA [None]
  - LYMPHADENOPATHY [None]
  - NAUSEA [None]
  - PAINFUL RESPIRATION [None]
  - PRURITUS [None]
  - PURPURA [None]
  - RASH ERYTHEMATOUS [None]
  - RASH MACULO-PAPULAR [None]
  - RASH MORBILLIFORM [None]
  - RASH SCARLATINIFORM [None]
  - THROMBOCYTOPENIA [None]
  - TREMOR [None]
